FAERS Safety Report 7469075-X (Version None)
Quarter: 2011Q2

REPORT INFORMATION
  Report Type: 
  Country: None (occurrence: None)
  Receive Date: 20110510
  Receipt Date: 20110428
  Transmission Date: 20111010
  Serious: Yes (Death, Hospitalization)
  Sender: FDA-Public Use
  Company Number: BR-BAYER-2011-014922

PATIENT
  Age: 71 Year
  Sex: Male
  Weight: 77 kg

DRUGS (3)
  1. NEXAVAR [Suspect]
     Dosage: 200 MG, QD
     Route: 048
     Dates: start: 20110331, end: 20110404
  2. NEXAVAR [Suspect]
     Indication: HEPATIC NEOPLASM MALIGNANT
     Dosage: 200 MG, BID
     Route: 048
     Dates: end: 20110329
  3. NEXAVAR [Suspect]
     Dosage: 400 MG IN THE MORNING AND 200 MG AT NIGHT
     Route: 048
     Dates: start: 20110330, end: 20110330

REACTIONS (6)
  - ASTHENIA [None]
  - HEPATORENAL FAILURE [None]
  - BLOOD POTASSIUM INCREASED [None]
  - TREMOR [None]
  - MALAISE [None]
  - RESPIRATORY FAILURE [None]
